FAERS Safety Report 5329871-1 (Version None)
Quarter: 2007Q2

REPORT INFORMATION
  Report Type: 
  Country: None (occurrence: None)
  Receive Date: 20070517
  Receipt Date: 20070517
  Transmission Date: 20071010
  Serious: No
  Sender: FDA-Public Use
  Company Number: None

PATIENT

DRUGS (2)
  1. REMICADE [Suspect]
     Indication: RHEUMATOID ARTHRITIS
     Dosage: 500MG X1 IV
     Route: 042
     Dates: start: 20070515, end: 20070516
  2. REMICADE [Suspect]
     Indication: PSORIATIC ARTHROPATHY
     Dosage: 600MG X1 IV
     Route: 042
     Dates: start: 20070423, end: 20070423

REACTIONS (3)
  - INFUSION RELATED REACTION [None]
  - PRURITUS [None]
  - URTICARIA [None]
